FAERS Safety Report 14487170 (Version 1)
Quarter: 2018Q1

REPORT INFORMATION
  Report Type: Spontaneous
  Country: US (occurrence: US)
  Receive Date: 20180204
  Receipt Date: 20180204
  Transmission Date: 20180509
  Serious: Yes (Other)
  Sender: FDA-Public Use
  Company Number: None

PATIENT
  Age: 74 Year
  Sex: Male
  Weight: 74.25 kg

DRUGS (1)
  1. FENTANYL. [Suspect]
     Active Substance: FENTANYL
     Indication: PAIN
     Dosage: 75 UG TRANSDERMAL EVERY 72 HOURS?
     Route: 062
     Dates: start: 20180204, end: 20180204

REACTIONS (2)
  - Respiratory distress [None]
  - Chest discomfort [None]

NARRATIVE: CASE EVENT DATE: 20180204
